FAERS Safety Report 6384552-0 (Version None)
Quarter: 2009Q4

REPORT INFORMATION
  Report Type: 
  Country: None (occurrence: None)
  Receive Date: 20091001
  Receipt Date: 20090922
  Transmission Date: 20100525
  Serious: Yes (Disabling)
  Sender: FDA-Public Use
  Company Number: CHPA2009FI18986

PATIENT
  Sex: Female

DRUGS (1)
  1. OTRIVIN [Suspect]
     Indication: NASAL CONGESTION
     Route: 045

REACTIONS (3)
  - EPISTAXIS [None]
  - MUCOSAL DRYNESS [None]
  - PAIN [None]
